FAERS Safety Report 7476407-5 (Version None)
Quarter: 2011Q2

REPORT INFORMATION
  Report Type: 
  Country: None (occurrence: None)
  Receive Date: 20110512
  Receipt Date: 20110504
  Transmission Date: 20111010
  Serious: Yes (Hospitalization)
  Sender: FDA-Public Use
  Company Number: NL-TEVA-281155ISR

PATIENT
  Sex: Female

DRUGS (3)
  1. CARBASALATE CALCIUM [Concomitant]
     Dosage: 100 MILLIGRAM;
  2. METOPROLOL TARTRATE [Suspect]
     Indication: HYPERTENSION
     Dosage: 100 MILLIGRAM;
     Route: 048
     Dates: start: 20110101, end: 20110415
  3. DIPYRIDAMOLE [Concomitant]
     Dosage: 200 MILLIGRAM;

REACTIONS (1)
  - CARDIAC ARREST [None]
